FAERS Safety Report 8817459 (Version 1)
Quarter: 2012Q4

REPORT INFORMATION
  Report Type: 
  Country: US (occurrence: US)
  Receive Date: 20121001
  Receipt Date: 20121001
  Transmission Date: 20130627
  Serious: Yes (Hospitalization, Other)
  Sender: FDA-Public Use
  Company Number: US-BAYER-2012-101128

PATIENT
  Age: 45 Year
  Sex: Female
  Weight: 65 kg

DRUGS (39)
  1. TRASYLOL [Suspect]
     Indication: MITRAL VALVE REPAIR
     Dosage: Loading dose 400ml
     Route: 042
     Dates: start: 20050506, end: 20050506
  2. TRASYLOL [Suspect]
     Indication: AORTIC VALVE REPLACEMENT
     Dosage: Initial dose 1mL
     Dates: start: 20050506, end: 20050506
  3. TRASYLOL [Suspect]
     Indication: TRICUSPID VALVE REPAIR
     Dosage: 50ml/hr continuous infusion
     Dates: start: 20050506, end: 20050506
  4. COUMADIN [Concomitant]
     Dosage: 8 mg, HS
     Route: 048
  5. LASIX [Concomitant]
     Dosage: 10 mg, QD
  6. TORSEMIDE [Concomitant]
     Dosage: 10 mg, QD
     Route: 048
  7. DIGOXIN [Concomitant]
     Dosage: 0.25 mg, QD
     Route: 048
  8. AMIODARONE [Concomitant]
     Dosage: UNK
  9. FERROUS SULFATE [Concomitant]
     Dosage: every other day
  10. POTASSIUM CHLORIDE [Concomitant]
     Dosage: 10 meq every other day
  11. PEPCID [Concomitant]
     Dosage: UNK
  12. ZANTAC [Concomitant]
  13. MAGNESIUM [Concomitant]
  14. MYLANTA [ALUMINIUM HYDROXIDE,MAGNESIUM HYDROXIDE,SIMETICONE] [Concomitant]
     Dosage: PRN
  15. ELSOFLURANE [Concomitant]
     Dosage: UNK
     Dates: start: 20050506, end: 20050506
  16. MIDAZOLAM [Concomitant]
     Dosage: UNK
     Dates: start: 20050506, end: 20050506
  17. HEPARIN [Concomitant]
     Dosage: UNK
     Dates: start: 20050506, end: 20050506
  18. ETOMIDATE [Concomitant]
     Dosage: UNK
     Dates: start: 20050506, end: 20050506
  19. SCOPOLAMINE [Concomitant]
     Dosage: UNK
     Dates: start: 20050506, end: 20050506
  20. FENTANYL [Concomitant]
     Dosage: UNK
     Dates: start: 20050506, end: 20050506
  21. PHENYLEPHRINE [PHENYLEPHRINE] [Concomitant]
     Dosage: UNK
     Dates: start: 20050506
  22. FUROSEMIDE [Concomitant]
     Dosage: UNK
     Dates: start: 20050506, end: 20050506
  23. PROTAMINE [Concomitant]
     Dosage: UNK
     Dates: start: 20050506, end: 20050506
  24. LIDOCAINE [Concomitant]
     Dosage: UNK
     Dates: start: 20050506, end: 20050506
  25. SUCCINYLCHOLINE CHLORIDE [Concomitant]
     Dosage: UNK
     Dates: start: 20050506, end: 20050506
  26. PANCURONIUM [Concomitant]
     Dosage: UNK
     Dates: start: 20050506, end: 20050506
  27. VASOPRESSIN [Concomitant]
     Dosage: UNK
     Dates: start: 20050506
  28. CALCIUM CHLORIDE [Concomitant]
     Dosage: UNK
     Dates: start: 20050506, end: 20050506
  29. VANCOMYCIN [Concomitant]
     Dosage: UNK
     Dates: start: 20050506, end: 20050506
  30. MILRINONE [Concomitant]
     Dosage: UNK
     Dates: start: 20050506
  31. NITROGLYCERINE [Concomitant]
     Dosage: UNK
     Dates: start: 20050506
  32. PROPOFOL [Concomitant]
     Dosage: UNK
     Dates: start: 20050506, end: 20050506
  33. EPINEPHRINE [Concomitant]
     Dosage: UNK
     Dates: start: 20050506
  34. DOPAMINE [Concomitant]
     Dosage: UNK
     Dates: start: 20050506, end: 20050506
  35. NOREPINEPHRINE [Concomitant]
     Dosage: UNK
     Dates: start: 20050506
  36. PACKED RED BLOOD CELLS [Concomitant]
     Dosage: UNK
     Dates: start: 20050506
  37. CELL SAVER [Concomitant]
  38. PLATELETS, HUMAN BLOOD [Concomitant]
  39. PLASMA [Concomitant]

REACTIONS (2)
  - Renal failure chronic [None]
  - Cardiac failure congestive [None]
